FAERS Safety Report 21629255 (Version 3)
Quarter: 2023Q4

REPORT INFORMATION
  Report Type: Spontaneous
  Country: US (occurrence: US)
  Receive Date: 20221122
  Receipt Date: 20231127
  Transmission Date: 20240109
  Serious: No
  Sender: FDA-Public Use
  Company Number: US-SA-SAC20221116000320

PATIENT
  Age: 1 Year
  Sex: Male

DRUGS (2)
  1. DUPIXENT [Suspect]
     Active Substance: DUPILUMAB
     Indication: Dermatitis atopic
     Dosage: 200 MG, Q4W
     Route: 058
     Dates: start: 202210
  2. POLIOMYELITIS VACCINE NOS [Concomitant]
     Active Substance: POLIOMYELITIS VACCINE
     Indication: Prophylaxis

REACTIONS (2)
  - Eczema [Unknown]
  - Dermatitis atopic [Unknown]
